FAERS Safety Report 21168427 (Version 1)
Quarter: 2022Q3

REPORT INFORMATION
  Report Type: Spontaneous
  Country: CN (occurrence: CN)
  Receive Date: 20220803
  Receipt Date: 20220803
  Transmission Date: 20221026
  Serious: Yes (Hospitalization, Other)
  Sender: FDA-Public Use
  Company Number: CN-009507513-2207CHN009057

PATIENT
  Age: 96 Year
  Sex: Male
  Weight: 50 kg

DRUGS (1)
  1. CILASTATIN SODIUM\IMIPENEM [Suspect]
     Active Substance: CILASTATIN SODIUM\IMIPENEM
     Indication: Chronic obstructive pulmonary disease
     Dosage: 500 MG, THREE TIMES DAILY
     Route: 041
     Dates: start: 20220709, end: 20220710

REACTIONS (6)
  - Urine output decreased [Recovered/Resolved]
  - Chromaturia [Recovered/Resolved]
  - Oxygen saturation abnormal [Unknown]
  - Blood pressure systolic abnormal [Unknown]
  - Breath sounds abnormal [Unknown]
  - Cyanosis [Unknown]

NARRATIVE: CASE EVENT DATE: 20220701
